FAERS Safety Report 12921840 (Version 2)
Quarter: 2016Q4

REPORT INFORMATION
  Report Type: Spontaneous
  Country: US (occurrence: US)
  Receive Date: 20161108
  Receipt Date: 20161227
  Transmission Date: 20170207
  Serious: Yes (Death, Hospitalization, Other)
  Sender: FDA-Public Use
  Company Number: US-PFIZER INC-2016514954

PATIENT
  Age: 59 Year
  Sex: Male
  Weight: 92.8 kg

DRUGS (10)
  1. LACTULOSE. [Concomitant]
     Active Substance: LACTULOSE
     Indication: LIVER DISORDER
     Dosage: 10 G, ORAL SOLUTION, 15 ML EVERY DAY
     Route: 048
     Dates: start: 20160607
  2. LORATADINE. [Concomitant]
     Active Substance: LORATADINE
     Dosage: 10 MG
     Route: 048
     Dates: start: 201609
  3. VIAGRA [Suspect]
     Active Substance: SILDENAFIL CITRATE
     Dosage: 100 MG, AS NEEDED
     Dates: start: 201607
  4. FUROSEMIDE. [Concomitant]
     Active Substance: FUROSEMIDE
     Dosage: UNK
     Dates: start: 20160607
  5. VIAGRA [Suspect]
     Active Substance: SILDENAFIL CITRATE
     Indication: ERECTILE DYSFUNCTION
     Dosage: 100 MG, ALTERNATE DAY
     Route: 048
     Dates: start: 20160726
  6. LEVOTHYROXINE. [Concomitant]
     Active Substance: LEVOTHYROXINE
     Indication: HYPOTHYROIDISM
     Dosage: 50 UG, DAILY
     Route: 048
     Dates: start: 20160607
  7. NADOLOL. [Concomitant]
     Active Substance: NADOLOL
     Dosage: 40 MG, QUARTER TABLET EVERY DAY
     Route: 048
     Dates: start: 20160607
  8. FUROSEMIDE. [Concomitant]
     Active Substance: FUROSEMIDE
     Dosage: 40 MG, EVERY DAY (20 MG, TWO TABLETS)
     Route: 048
     Dates: start: 20160801
  9. LORATADINE. [Concomitant]
     Active Substance: LORATADINE
     Dosage: UNK
     Dates: start: 20160607
  10. OMEPRAZOLE. [Concomitant]
     Active Substance: OMEPRAZOLE
     Indication: DUODENOGASTRIC REFLUX
     Dosage: 20 MG, 1 CAPSULE EVERY DAY
     Route: 048
     Dates: start: 20160607

REACTIONS (4)
  - Internal haemorrhage [Fatal]
  - Loss of consciousness [Unknown]
  - Hepatic failure [Fatal]
  - Intentional product misuse [Unknown]
